FAERS Safety Report 4515068-1 (Version None)
Quarter: 2004Q4

REPORT INFORMATION
  Report Type: 
  Country: None (occurrence: None)
  Receive Date: 20041201
  Receipt Date: 20041122
  Transmission Date: 20050328
  Serious: Yes (Hospitalization)
  Sender: FDA-Public Use
  Company Number: SE-MERCK-0411SWE00042

PATIENT
  Age: 59 Year
  Sex: Male

DRUGS (1)
  1. VIOXX [Suspect]
     Indication: NECK PAIN
     Route: 048
     Dates: start: 20010911, end: 20041001

REACTIONS (1)
  - CEREBRAL INFARCTION [None]
